FAERS Safety Report 20573402 (Version 1)
Quarter: 2022Q1

REPORT INFORMATION
  Report Type: Spontaneous
  Country: None (occurrence: FR)
  Receive Date: 20220309
  Receipt Date: 20220309
  Transmission Date: 20220424
  Serious: Yes (Death)
  Sender: FDA-Public Use
  Company Number: FR-B.Braun Medical Inc.-2126604

PATIENT
  Age: 33 Year
  Sex: Male

DRUGS (5)
  1. ACETAMINOPHEN [Suspect]
     Active Substance: ACETAMINOPHEN
  2. CODEINE [Suspect]
     Active Substance: CODEINE
  3. ALCOHOL [Suspect]
     Active Substance: ALCOHOL
  4. MORPHINE HYDROCHLORIDE [Suspect]
     Active Substance: MORPHINE HYDROCHLORIDE
  5. PAPAVERINE [Suspect]
     Active Substance: PAPAVERINE

REACTIONS (3)
  - Respiratory depression [Fatal]
  - Asphyxia [Fatal]
  - Drug abuse [Fatal]
